FAERS Safety Report 9679960 (Version 1)
Quarter: 2013Q4

REPORT INFORMATION
  Report Type: Report from Study
  Country: US (occurrence: US)
  Receive Date: 20131110
  Receipt Date: 20131110
  Transmission Date: 20140711
  Serious: No
  Sender: FDA-Public Use
  Company Number: PHEH2013US022690

PATIENT
  Sex: Male

DRUGS (7)
  1. TASIGNA [Suspect]
     Indication: CHRONIC MYELOID LEUKAEMIA
     Dosage: 150 MG, BID
     Route: 048
     Dates: start: 20130927
  2. WARFARIN [Interacting]
     Dosage: 5 MG, UNK
  3. KCL [Concomitant]
     Dosage: 20 MEQ, UNK
  4. FUROSEMIDE [Concomitant]
  5. METOPROLOL TARTRATE [Concomitant]
  6. CRESTOR [Concomitant]
  7. AMLODIPINE BESYLATE [Concomitant]

REACTIONS (6)
  - Aphonia [Unknown]
  - Oedema peripheral [Unknown]
  - Dysphonia [Unknown]
  - Headache [Unknown]
  - Musculoskeletal pain [Unknown]
  - Drug interaction [Unknown]
